FAERS Safety Report 12511625 (Version 1)
Quarter: 2016Q2

REPORT INFORMATION
  Report Type: Spontaneous
  Country: US (occurrence: US)
  Receive Date: 20160630
  Receipt Date: 20160630
  Transmission Date: 20160815
  Serious: No
  Sender: FDA-Public Use
  Company Number: US-009507513-1606USA004500

PATIENT
  Age: 77 Year
  Sex: Female

DRUGS (2)
  1. VENTOLIN [Concomitant]
     Active Substance: ALBUTEROL SULFATE
  2. DULERA [Suspect]
     Active Substance: FORMOTEROL FUMARATE DIHYDRATE\MOMETASONE FUROATE
     Indication: ASTHMA
     Dosage: DOSE 200 MCG/ 5 MCG- 1 PUFF(DF) TWICE DAILY (BID)
     Route: 055

REACTIONS (3)
  - Dysphonia [Unknown]
  - Musculoskeletal chest pain [Unknown]
  - Urticaria [Unknown]
